FAERS Safety Report 4675173-6 (Version None)
Quarter: 2005Q2

REPORT INFORMATION
  Report Type: 
  Country: None (occurrence: None)
  Receive Date: 20050526
  Receipt Date: 20050512
  Transmission Date: 20051028
  Serious: Yes (Hospitalization)
  Sender: FDA-Public Use
  Company Number: 2005075386

PATIENT
  Sex: Female
  Weight: 68.9467 kg

DRUGS (4)
  1. BEXTRA [Suspect]
     Indication: ARTHRALGIA
     Dosage: ORAL
     Route: 048
     Dates: end: 20040101
  2. VIOXX [Suspect]
     Indication: ARTHRALGIA
     Dosage: ORAL
     Route: 048
     Dates: start: 20030101, end: 20030101
  3. VERAPAMIL [Concomitant]
  4. IRBESARTAN [Concomitant]

REACTIONS (11)
  - ABDOMINAL DISTENSION [None]
  - CHEST WALL PAIN [None]
  - DIARRHOEA [None]
  - DRUG INEFFECTIVE [None]
  - INADEQUATE ANALGESIA [None]
  - INCREASED TENDENCY TO BRUISE [None]
  - INFLAMMATION [None]
  - SKIN LESION [None]
  - STOMACH DISCOMFORT [None]
  - VOMITING [None]
  - WEIGHT DECREASED [None]
